FAERS Safety Report 4346474-6 (Version None)
Quarter: 2004Q2

REPORT INFORMATION
  Report Type: 
  Country: None (occurrence: None)
  Receive Date: 20040426
  Receipt Date: 20030604
  Transmission Date: 20050107
  Serious: No
  Sender: FDA-Public Use
  Company Number: US-BRISTOL-MYERS SQUIBB COMPANY-12292603

PATIENT
  Age: 72 Year
  Sex: Female
  Weight: 68 kg

DRUGS (7)
  1. CARBOPLATIN [Suspect]
     Indication: LUNG NEOPLASM MALIGNANT
     Dosage: INITIAL DOSE: 09-MAY-2003  LOT #3A70629, EXPIRATION DATE: 30-NOV-2005
     Route: 042
     Dates: start: 20030530, end: 20030530
  2. LIPITOR [Concomitant]
  3. HYDROCHLOROTHIAZIDE [Concomitant]
  4. DECADRON [Concomitant]
     Indication: PREMEDICATION
     Dosage: AT HOME
     Route: 048
     Dates: start: 20030530
  5. DECADRON [Concomitant]
     Route: 042
     Dates: start: 20030530
  6. ANZEMET [Concomitant]
     Indication: PREMEDICATION
     Route: 042
     Dates: start: 20030530
  7. TAXOTERE [Concomitant]
     Route: 042
     Dates: start: 20030530, end: 20030530

REACTIONS (3)
  - BLOOD PRESSURE INCREASED [None]
  - DIZZINESS [None]
  - FLUSHING [None]
